FAERS Safety Report 13320261 (Version 1)
Quarter: 2017Q1

REPORT INFORMATION
  Report Type: Report from Study
  Country: US (occurrence: US)
  Receive Date: 20170310
  Receipt Date: 20170310
  Transmission Date: 20170428
  Serious: Yes (Death, Other)
  Sender: FDA-Public Use
  Company Number: US-MYLANLABS-2017M1014483

PATIENT

DRUGS (5)
  1. ETOPOSIDE. [Suspect]
     Active Substance: ETOPOSIDE
     Indication: HODGKIN^S DISEASE
     Dosage: 200 MG/M 2 OVER 60 MINUTES EVERY 12HOURS BEGINNING ON DAY 1
     Route: 041
  2. IFOSFAMIDE. [Suspect]
     Active Substance: IFOSFAMIDE
     Indication: HODGKIN^S DISEASE
     Dosage: 5000 MG/M2 CONTINUOUS INFUSION OVER 24 H ON DAYS 1 AND 2
     Route: 050
  3. BRENTUXIMAB VEDOTIN [Suspect]
     Active Substance: BRENTUXIMAB VEDOTIN
     Indication: HODGKIN^S DISEASE
     Dosage: 1.2 MG/KG WEEKLY FOR 30MINUTES ON DAYS 1, 8 AND 15
     Route: 041
  4. MESNA. [Suspect]
     Active Substance: MESNA
     Indication: HODGKIN^S DISEASE
     Dosage: 5000 MG/M CONTINUOUS INFUSION OVER 24 H ON DAYS 1 AND 2
     Route: 050
  5. CARBOPLATIN. [Suspect]
     Active Substance: CARBOPLATIN
     Indication: HODGKIN^S DISEASE
     Dosage: DOSED AT AN AREA-UNDER-THE-CURVE OF 5 ON DAY 3
     Route: 065

REACTIONS (1)
  - Progressive multifocal leukoencephalopathy [Fatal]
